FAERS Safety Report 5177001-1 (Version None)
Quarter: 2006Q4

REPORT INFORMATION
  Report Type: 
  Country: None (occurrence: None)
  Receive Date: 20061207
  Receipt Date: 20061128
  Transmission Date: 20070319
  Serious: Yes (Life-Threatening, Other)
  Sender: FDA-Public Use
  Company Number: HQWYE324312MAY06

PATIENT
  Age: 73 Year
  Sex: Male

DRUGS (5)
  1. CORDARONE [Suspect]
     Indication: VENTRICULAR EXTRASYSTOLES
     Dosage: 200 MG 1X PER 1 DAY; ORAL
     Route: 048
     Dates: start: 20051101, end: 20060419
  2. LEVOBREN (LEVOSULPIRIDE, ) [Suspect]
     Indication: ANOREXIA
     Dosage: 20 DROP 1X PER 1 DAY; ORAL
     Route: 048
     Dates: start: 20060219, end: 20060419
  3. TAMOXIFEN CITRATE [Suspect]
     Indication: BREAST CANCER
     Dosage: 10MG 1X PER 1 DAY; ORAL
     Route: 048
     Dates: start: 20051101, end: 20060419
  4. RISPERDAL [Concomitant]
  5. CITALOPRAM HYDROBROMIDE [Concomitant]

REACTIONS (3)
  - CIRCULATORY COLLAPSE [None]
  - LOSS OF CONSCIOUSNESS [None]
  - TORSADE DE POINTES [None]
